FAERS Safety Report 7843776-3 (Version None)
Quarter: 2011Q4

REPORT INFORMATION
  Report Type: 
  Country: None (occurrence: None)
  Receive Date: 20111019
  Receipt Date: 20111011
  Transmission Date: 20120403
  Serious: Yes (Hospitalization, Other)
  Sender: FDA-Public Use
  Company Number: 2009SP033450

PATIENT
  Age: 28 Year
  Sex: Female
  Weight: 127.0072 kg

DRUGS (3)
  1. NUVARING [Suspect]
     Indication: PREGNANCY
     Dates: start: 20050901, end: 20071028
  2. NUVARING [Suspect]
     Indication: MENOMETRORRHAGIA
     Dates: start: 20050901, end: 20071028
  3. TYLENOL-500 [Concomitant]

REACTIONS (17)
  - ABORTION SPONTANEOUS [None]
  - MATERNAL EXPOSURE DURING PREGNANCY [None]
  - DEEP VEIN THROMBOSIS [None]
  - PULMONARY EMBOLISM [None]
  - LIGAMENT SPRAIN [None]
  - PALPITATIONS [None]
  - ABORTION MISSED [None]
  - CERVICAL DYSPLASIA [None]
  - CERVICITIS [None]
  - LIMB INJURY [None]
  - HEADACHE [None]
  - SMEAR CERVIX ABNORMAL [None]
  - IRON DEFICIENCY ANAEMIA [None]
  - VAGINITIS BACTERIAL [None]
  - ANAEMIA [None]
  - BREAST MASS [None]
  - CERVICAL CYST [None]
